FAERS Safety Report 22192520 (Version 3)
Quarter: 2023Q2

REPORT INFORMATION
  Report Type: Spontaneous
  Country: US (occurrence: US)
  Receive Date: 20230410
  Receipt Date: 20230421
  Transmission Date: 20230722
  Serious: Yes (Other)
  Sender: FDA-Public Use
  Company Number: US-PFIZER INC-202300147152

PATIENT
  Age: 74 Year
  Sex: Female
  Weight: 40.82 kg

DRUGS (2)
  1. PAXLOVID [Suspect]
     Active Substance: NIRMATRELVIR\RITONAVIR
     Indication: COVID-19 treatment
     Dosage: [PF-07321332 300 MG]/[RITONAVIR 100 MG]; 2X/DAY
     Dates: start: 20230404, end: 20230405
  2. PREDNISONE [Concomitant]
     Active Substance: PREDNISONE
     Indication: Crohn^s disease
     Dosage: 20MG A DAY

REACTIONS (8)
  - Syncope [Recovering/Resolving]
  - Heart rate increased [Recovered/Resolved]
  - Eye movement disorder [Recovering/Resolving]
  - Dizziness [Recovering/Resolving]
  - Nervousness [Unknown]
  - Dysstasia [Recovering/Resolving]
  - Tremor [Recovered/Resolved]
  - Muscular weakness [Unknown]

NARRATIVE: CASE EVENT DATE: 20230404
